FAERS Safety Report 4884218-X (Version None)
Quarter: 2005Q4

REPORT INFORMATION
  Report Type: 
  Country: None (occurrence: None)
  Receive Date: 20051201
  Receipt Date: 20050825
  Transmission Date: 20060501
  Serious: No
  Sender: FDA-Public Use
  Company Number: 2005PV001630

PATIENT
  Age: 44 Year
  Sex: Female
  Weight: 76.2043 kg

DRUGS (6)
  1. BYETTA [Suspect]
     Indication: DIABETES MELLITUS NON-INSULIN-DEPENDENT
     Dosage: 10 MCG; BID; SC
     Route: 058
     Dates: start: 20050701
  2. GLUCOPHAGE XR [Concomitant]
  3. LANTUS [Concomitant]
  4. PROZAC [Concomitant]
  5. LISINOPRIL [Concomitant]
  6. LOPID [Concomitant]

REACTIONS (4)
  - CRYING [None]
  - DEPRESSION [None]
  - INSOMNIA [None]
  - WEIGHT DECREASED [None]
